FAERS Safety Report 17217272 (Version 1)
Quarter: 2019Q4

REPORT INFORMATION
  Report Type: Report from Study
  Country: US (occurrence: US)
  Receive Date: 20191231
  Receipt Date: 20191231
  Transmission Date: 20200122
  Serious: Yes (Other)
  Sender: FDA-Public Use
  Company Number: US-ROCHE-2502811

PATIENT
  Age: 55 Year
  Sex: Female
  Weight: 64.92 kg

DRUGS (2)
  1. TYSABRI [Concomitant]
     Active Substance: NATALIZUMAB
  2. OCREVUS [Suspect]
     Active Substance: OCRELIZUMAB
     Indication: PRIMARY PROGRESSIVE MULTIPLE SCLEROSIS
     Route: 042
     Dates: start: 201812

REACTIONS (8)
  - Cellulitis [Unknown]
  - Mass [Unknown]
  - Skin hypertrophy [Unknown]
  - Decreased appetite [Unknown]
  - Pruritus [Unknown]
  - Nausea [Unknown]
  - Rash [Unknown]
  - Alopecia [Unknown]

NARRATIVE: CASE EVENT DATE: 201906
